FAERS Safety Report 7554162-8 (Version None)
Quarter: 2011Q2

REPORT INFORMATION
  Report Type: 
  Country: None (occurrence: None)
  Receive Date: 20110614
  Receipt Date: 20110614
  Transmission Date: 20111010
  Serious: No
  Sender: FDA-Public Use
  Company Number: None

PATIENT
  Sex: Female
  Weight: 77 kg

DRUGS (2)
  1. FLUOROSCEIN 10% 100MG/ML, 5ML ALCON [Suspect]
     Indication: ENDOSCOPY
     Dosage: 500MG X1 IV
     Route: 042
     Dates: start: 20101102
  2. FLUOROSCEIN 10% 100MG/ML, 5ML ALCON [Suspect]
     Indication: INTESTINAL MASS
     Dosage: 500MG X1 IV
     Route: 042
     Dates: start: 20101102

REACTIONS (1)
  - ANAPHYLACTIC REACTION [None]
